FAERS Safety Report 9914317 (Version 1)
Quarter: 2014Q1

REPORT INFORMATION
  Report Type: Spontaneous
  Country: US (occurrence: US)
  Receive Date: 20140220
  Receipt Date: 20140220
  Transmission Date: 20141002
  Serious: Yes (Hospitalization)
  Sender: FDA-Public Use
  Company Number: US-AMGEN-USASP2014011009

PATIENT
  Age: 62 Year
  Sex: Female

DRUGS (1)
  1. NPLATE [Suspect]
     Indication: PRODUCT USED FOR UNKNOWN INDICATION
     Dosage: UNK
     Route: 065
     Dates: start: 201401

REACTIONS (6)
  - Investigation [Unknown]
  - Gastric dilatation [Unknown]
  - Muscular weakness [Unknown]
  - Thrombosis [Unknown]
  - Pain in extremity [Unknown]
  - Platelet count abnormal [Unknown]
